FAERS Safety Report 17707063 (Version 6)
Quarter: 2020Q3

REPORT INFORMATION
  Report Type: Spontaneous
  Country: CA (occurrence: CA)
  Receive Date: 20200424
  Receipt Date: 20200715
  Transmission Date: 20201102
  Serious: Yes (Hospitalization, Other)
  Sender: FDA-Public Use
  Company Number: CA-CELLTRION INC.-2019CA019845

PATIENT

DRUGS (17)
  1. INFLECTRA [Suspect]
     Active Substance: INFLIXIMAB-DYYB
     Dosage: 300 MG, 0, 2, 6 AND THEN EVERY 8 WEEKS
     Route: 042
     Dates: start: 20190711
  2. FENTANYL. [Concomitant]
     Active Substance: FENTANYL
     Indication: SEDATION
     Dosage: 150 UG
     Route: 042
     Dates: start: 20191122, end: 20191122
  3. INFLECTRA [Suspect]
     Active Substance: INFLIXIMAB-DYYB
     Dosage: 10 MG/KG, EVERY 6 WEEKS
     Route: 042
     Dates: start: 20191101
  4. INFLECTRA [Suspect]
     Active Substance: INFLIXIMAB-DYYB
     Indication: CROHN^S DISEASE
     Dosage: 300 MG, 0, 2, 6 AND THEN EVERY 8 WEEKS
     Route: 042
     Dates: start: 20190404, end: 20191031
  5. INFLECTRA [Suspect]
     Active Substance: INFLIXIMAB-DYYB
     Dosage: 300 MG, 0, 2, 6 AND THEN EVERY 8 WEEKS
     Route: 042
     Dates: start: 20190418
  6. INFLECTRA [Suspect]
     Active Substance: INFLIXIMAB-DYYB
     Dosage: 10 MG/KG EVERY 6 WEEKS
     Route: 042
     Dates: start: 20191122
  7. INFLECTRA [Suspect]
     Active Substance: INFLIXIMAB-DYYB
     Dosage: 10 MG/KG, EVERY 6 WEEKS
     Route: 042
     Dates: start: 20200305
  8. VERSED [Concomitant]
     Active Substance: MIDAZOLAM HYDROCHLORIDE
     Indication: SEDATION
     Dosage: 7 MG
     Route: 042
     Dates: start: 20191122, end: 20191122
  9. INFLECTRA [Suspect]
     Active Substance: INFLIXIMAB-DYYB
     Dosage: 10 MG/KG EVERY 6 WEEKS
     Route: 042
     Dates: start: 20200416
  10. TYLENOL [Concomitant]
     Active Substance: ACETAMINOPHEN
     Dosage: 1 G, UNK
  11. INFLECTRA [Suspect]
     Active Substance: INFLIXIMAB-DYYB
     Dosage: 300 MG, 0, 2, 6 AND THEN EVERY 8 WEEKS
     Route: 042
     Dates: start: 20190516
  12. INFLECTRA [Suspect]
     Active Substance: INFLIXIMAB-DYYB
     Dosage: 10 MG/KG, EVERY 6 WEEKS
     Route: 042
     Dates: start: 20191101
  13. INFLECTRA [Suspect]
     Active Substance: INFLIXIMAB-DYYB
     Dosage: 10 MG/KG, EVERY 6 WEEKS
     Route: 042
     Dates: start: 20191223
  14. PREDNISONE. [Concomitant]
     Active Substance: PREDNISONE
     Dosage: 20 MG, UNK (DOWN FROM 40 MG)
     Route: 065
  15. BENADRYL [Concomitant]
     Active Substance: DIPHENHYDRAMINE HYDROCHLORIDE
     Indication: SEDATION
     Dosage: UNK UNK, AS NEEDED
     Route: 048
  16. BENADRYL [Concomitant]
     Active Substance: DIPHENHYDRAMINE HYDROCHLORIDE
     Dosage: 50 MG, UNK
     Route: 042
     Dates: start: 20191122, end: 20191122
  17. GRAVOL [Concomitant]
     Active Substance: DIMENHYDRINATE
     Dosage: 50 MG, UNK
     Route: 042

REACTIONS (22)
  - Small intestine ulcer [Unknown]
  - Malaise [Unknown]
  - Ileal ulcer [Unknown]
  - Throat tightness [Recovering/Resolving]
  - Acrochordon [Unknown]
  - Asthma [Unknown]
  - Anal fistula [Unknown]
  - Drug specific antibody present [Unknown]
  - Heart rate increased [Unknown]
  - Throat irritation [Recovered/Resolved]
  - Off label use [Unknown]
  - Pruritus [Unknown]
  - Dyspnoea [Recovering/Resolving]
  - Nausea [Recovered/Resolved]
  - Drug level below therapeutic [Unknown]
  - Dyspnoea [Unknown]
  - Infusion related reaction [Unknown]
  - Off label use [Unknown]
  - Large intestinal ulcer [Unknown]
  - Flushing [Recovering/Resolving]
  - Anxiety [Recovering/Resolving]
  - Vomiting [Recovered/Resolved]

NARRATIVE: CASE EVENT DATE: 2019
